FAERS Safety Report 10276431 (Version 1)
Quarter: 2014Q3

REPORT INFORMATION
  Report Type: Spontaneous
  Country: US (occurrence: None)
  Receive Date: 20140701
  Receipt Date: 20140701
  Transmission Date: 20150326
  Serious: No
  Sender: FDA-Public Use
  Company Number: None

PATIENT
  Age: 62 Year
  Sex: Female

DRUGS (1)
  1. HUMIRA [Suspect]
     Active Substance: ADALIMUMAB
     Indication: RHEUMATOID ARTHRITIS
     Dosage: 40MG?EVERY 2 WEEKS?SUBCUTANEOUS
     Route: 058
     Dates: start: 20140619, end: 20140619

REACTIONS (2)
  - Rash [None]
  - Nausea [None]

NARRATIVE: CASE EVENT DATE: 20140619
